FAERS Safety Report 7447848-7 (Version None)
Quarter: 2011Q2

REPORT INFORMATION
  Report Type: 
  Country: None (occurrence: None)
  Receive Date: 20110429
  Receipt Date: 20100419
  Transmission Date: 20111010
  Serious: No
  Sender: FDA-Public Use
  Company Number: US-ASTRAZENECA-2010SE13026

PATIENT
  Age: 50 Year
  Sex: Female
  Weight: 104.3 kg

DRUGS (6)
  1. NEXIUM [Suspect]
     Indication: GASTROOESOPHAGEAL REFLUX DISEASE
     Route: 048
     Dates: start: 20090901, end: 20100101
  2. NEXIUM [Suspect]
     Indication: IRRITABLE BOWEL SYNDROME
     Route: 048
     Dates: start: 20090901, end: 20100101
  3. NEXIUM [Suspect]
     Route: 048
     Dates: start: 20100301
  4. NEXIUM [Suspect]
     Route: 048
     Dates: start: 20100301
  5. PROBIOTICS [Concomitant]
  6. VITAMINS [Concomitant]

REACTIONS (4)
  - GASTROOESOPHAGEAL REFLUX DISEASE [None]
  - ABDOMINAL PAIN [None]
  - BREAST PAIN [None]
  - IRRITABLE BOWEL SYNDROME [None]
